FAERS Safety Report 24744300 (Version 1)
Quarter: 2024Q4

REPORT INFORMATION
  Report Type: Spontaneous
  Country: CN (occurrence: CN)
  Receive Date: 20241217
  Receipt Date: 20241217
  Transmission Date: 20250115
  Serious: Yes (Hospitalization, Other)
  Sender: BAXTER
  Company Number: None

PATIENT
  Age: 1 Year
  Sex: Male
  Weight: 9 kg

DRUGS (7)
  1. CYCLOPHOSPHAMIDE [Suspect]
     Active Substance: CYCLOPHOSPHAMIDE
     Indication: Neuroblastoma
     Dosage: 0.55 G, ONE TIME IN ONE DAY, DILUTED WITH 250 ML OF GLUCOSE AND SODIUM CHLORIDE (4:1)
     Route: 041
     Dates: start: 20241017, end: 20241018
  2. EPIRUBICIN [Suspect]
     Active Substance: EPIRUBICIN
     Indication: Neuroblastoma
     Dosage: 7.5 MG, ONE TIME IN ONE DAY, DILUTED WITH 250 ML OF 0.9% SODIUM CHLORIDE INJECTION
     Route: 041
     Dates: start: 20241017, end: 20241019
  3. VINDESINE SULFATE [Suspect]
     Active Substance: VINDESINE SULFATE
     Indication: Neuroblastoma
     Dosage: 0.9 MG, ONE TIME IN ONE DAY, DILUTED WITH 50 ML OF 0.9% SODIUM CHLORIDE INJECTION
     Route: 041
     Dates: start: 20241017, end: 20241017
  4. SODIUM CHLORIDE [Suspect]
     Active Substance: SODIUM CHLORIDE
     Indication: Medication dilution
     Dosage: 250 ML SODIUM CHLORIDE AND GLUCOSE INJECTION (1:4), ONE TIME IN ONE DAY, USED TO DILUTE 0.55 G OF CY
     Route: 041
     Dates: start: 20241017, end: 20241018
  5. SODIUM CHLORIDE [Suspect]
     Active Substance: SODIUM CHLORIDE
     Dosage: (0.9%) 250 ML, ONE TIME IN ONE DAY USED TO DILUTE 7.5 MG OF EPIRUBICIN HYDROCHLORIDE
     Route: 041
     Dates: start: 20241017, end: 20241019
  6. SODIUM CHLORIDE [Suspect]
     Active Substance: SODIUM CHLORIDE
     Dosage: (0.9%) 50 ML, ONE TIME IN ONE DAY USED TO DILUTE 0.9 MG OF VINDESINE SULFATE
     Route: 041
     Dates: start: 20241017, end: 20241017
  7. DEXTROSE [Suspect]
     Active Substance: DEXTROSE MONOHYDRATE
     Indication: Medication dilution
     Dosage: 250 ML GLUCOSE AND SODIUM CHLORIDE INJECTION (4: 1), ONE TIME IN ONE DAY, USED TO DILUTE 0.55 G OF C
     Route: 041
     Dates: start: 20241017, end: 20241018

REACTIONS (1)
  - Myelosuppression [Recovering/Resolving]

NARRATIVE: CASE EVENT DATE: 20241027
